FAERS Safety Report 11988628 (Version 1)
Quarter: 2016Q1

REPORT INFORMATION
  Report Type: Spontaneous
  Country: US (occurrence: US)
  Receive Date: 20160202
  Receipt Date: 20160202
  Transmission Date: 20160526
  Serious: Yes (Hospitalization)
  Sender: FDA-Public Use
  Company Number: US-JNJFOC-20160121897

PATIENT
  Age: 71 Year
  Sex: Female
  Weight: 64 kg

DRUGS (15)
  1. PALBOCICLIB [Concomitant]
     Active Substance: PALBOCICLIB
     Route: 048
     Dates: start: 20150930
  2. NORCO [Concomitant]
     Active Substance: ACETAMINOPHEN\HYDROCODONE BITARTRATE
     Dosage: AS NEEDED
     Route: 048
     Dates: start: 20151223
  3. VENTOLIN HFA [Concomitant]
     Active Substance: ALBUTEROL SULFATE
     Dosage: 2 PUFFS DAILY QID AS NEEDED
     Route: 055
  4. SYMBICORT [Concomitant]
     Active Substance: BUDESONIDE\FORMOTEROL FUMARATE DIHYDRATE
     Dosage: 2 PUFFS
     Route: 065
  5. XANAX [Concomitant]
     Active Substance: ALPRAZOLAM
     Dosage: AS NEEDED
     Route: 048
  6. XARELTO [Suspect]
     Active Substance: RIVAROXABAN
     Indication: PULMONARY EMBOLISM
     Route: 048
     Dates: start: 20151113, end: 201512
  7. BAYER ASPIRIN [Suspect]
     Active Substance: ASPIRIN
     Indication: CEREBROVASCULAR ACCIDENT
     Route: 048
     Dates: start: 20151122, end: 201512
  8. TYLENOL [Concomitant]
     Active Substance: ACETAMINOPHEN
     Route: 048
  9. XARELTO [Suspect]
     Active Substance: RIVAROXABAN
     Indication: DEEP VEIN THROMBOSIS
     Route: 048
     Dates: start: 20151113, end: 201512
  10. PROCHLORPERAZINE. [Concomitant]
     Active Substance: PROCHLORPERAZINE
     Route: 048
     Dates: start: 20151007
  11. SALBUTAMOL SULFATE [Concomitant]
     Active Substance: ALBUTEROL SULFATE
     Dosage: NEBULIZER AS NEEDED
     Route: 065
  12. LASIX [Concomitant]
     Active Substance: FUROSEMIDE
     Route: 048
  13. FEMARA [Concomitant]
     Active Substance: LETROZOLE
     Route: 048
     Dates: start: 20120607
  14. PEPCID [Concomitant]
     Active Substance: FAMOTIDINE
     Route: 048
  15. LISINOPRIL. [Concomitant]
     Active Substance: LISINOPRIL
     Route: 048

REACTIONS (8)
  - Gastritis [Unknown]
  - Cerebrovascular accident [Unknown]
  - Musculoskeletal pain [Recovering/Resolving]
  - Product use issue [Unknown]
  - Exercise tolerance decreased [Unknown]
  - Back pain [Recovering/Resolving]
  - Epistaxis [Recovered/Resolved]
  - Gastrointestinal haemorrhage [Unknown]

NARRATIVE: CASE EVENT DATE: 201511
